FAERS Safety Report 4537039-1 (Version None)
Quarter: 2004Q4

REPORT INFORMATION
  Report Type: 
  Country: None (occurrence: None)
  Receive Date: 20041220
  Receipt Date: 20041213
  Transmission Date: 20050328
  Serious: Yes (Death)
  Sender: FDA-Public Use
  Company Number: DEWYE276013DEC04

PATIENT
  Age: 26 Year
  Sex: Female

DRUGS (1)
  1. LEIOS (LEVONORGESTREL/ETHINYL ESTRADIOL, TABLET, 0) [Suspect]
     Indication: CONTRACEPTION
     Dates: start: 20010301, end: 20030801

REACTIONS (22)
  - BLOOD COPPER INCREASED [None]
  - CARDIOPULMONARY FAILURE [None]
  - COAGULOPATHY [None]
  - COLECTOMY PARTIAL [None]
  - DISTURBANCE IN ATTENTION [None]
  - FIBRIN D DIMER INCREASED [None]
  - GENERAL PHYSICAL HEALTH DETERIORATION [None]
  - HEPATIC ARTERY THROMBOSIS [None]
  - HEPATIC FAILURE [None]
  - HEPATIC NECROSIS [None]
  - HEPATITIS FULMINANT [None]
  - HEPATO-LENTICULAR DEGENERATION [None]
  - INTESTINAL ISCHAEMIA [None]
  - INTRA-ABDOMINAL HAEMORRHAGE [None]
  - LIVER TRANSPLANT [None]
  - PLATELET COUNT DECREASED [None]
  - PULMONARY EMBOLISM [None]
  - RENAL FAILURE ACUTE [None]
  - RESPIRATORY FAILURE [None]
  - SEPSIS [None]
  - SHOCK [None]
  - TRANSPLANT FAILURE [None]
